FAERS Safety Report 6510204-X (Version None)
Quarter: 2009Q4

REPORT INFORMATION
  Report Type: 
  Country: None (occurrence: None)
  Receive Date: 20091222
  Receipt Date: 20091216
  Transmission Date: 20100525
  Serious: Yes (Hospitalization)
  Sender: FDA-Public Use
  Company Number: FR-BRISTOL-MYERS SQUIBB COMPANY-14898134

PATIENT
  Age: 71 Year
  Sex: Female

DRUGS (5)
  1. APROVEL [Suspect]
     Route: 048
  2. FURADANTIN [Suspect]
     Route: 048
     Dates: end: 20091001
  3. TENORMIN [Suspect]
     Route: 048
  4. BUMEX [Suspect]
     Route: 048
  5. ZANIDIP [Suspect]
     Route: 048

REACTIONS (1)
  - PULMONARY FIBROSIS [None]
